FAERS Safety Report 23134184 (Version 1)
Quarter: 2023Q4

REPORT INFORMATION
  Report Type: Spontaneous
  Country: CA (occurrence: None)
  Receive Date: 20231101
  Receipt Date: 20231101
  Transmission Date: 20240109
  Serious: Yes (Hospitalization, Other)
  Sender: FDA-Public Use
  Company Number: 2023A245639

PATIENT
  Age: 28489 Day
  Sex: Female

DRUGS (1)
  1. CRESTOR [Suspect]
     Active Substance: ROSUVASTATIN CALCIUM
     Indication: Hypercholesterolaemia
     Dosage: 10.0MG UNKNOWN
     Route: 048

REACTIONS (4)
  - Gastrointestinal carcinoma [Unknown]
  - Diarrhoea [Unknown]
  - Product dose omission issue [Unknown]
  - Intentional product misuse [Unknown]
